FAERS Safety Report 6543063-X (Version None)
Quarter: 2010Q1

REPORT INFORMATION
  Report Type: 
  Country: None (occurrence: None)
  Receive Date: 20100120
  Receipt Date: 20100105
  Transmission Date: 20100710
  Serious: Yes (Hospitalization, Other)
  Sender: FDA-Public Use
  Company Number: US-BAYER-200942022NA

PATIENT
  Sex: Female

DRUGS (2)
  1. BETASERON [Suspect]
     Indication: MULTIPLE SCLEROSIS
     Route: 058
     Dates: start: 20060201, end: 20070101
  2. YASMIN [Suspect]
     Dates: start: 20050301, end: 20070101

REACTIONS (2)
  - MULTIPLE SCLEROSIS [None]
  - PULMONARY EMBOLISM [None]
